FAERS Safety Report 5464133-3 (Version None)
Quarter: 2007Q3

REPORT INFORMATION
  Report Type: 
  Country: None (occurrence: None)
  Receive Date: 20070921
  Receipt Date: 20070912
  Transmission Date: 20080115
  Serious: Yes (Hospitalization)
  Sender: FDA-Public Use
  Company Number: PHBS2007DE15233

PATIENT
  Age: 65 Year
  Sex: Male
  Weight: 77 kg

DRUGS (3)
  1. LEPONEX [Suspect]
     Indication: SCHIZOPHRENIA
     Dosage: 50 MG/DAY
  2. INVEGA [Suspect]
     Indication: SCHIZOPHRENIA
     Dosage: 6 MG/DAY
     Dates: start: 20070825, end: 20070827
  3. FLUPENTIXOL DECANOATE [Suspect]
     Indication: SCHIZOPHRENIA

REACTIONS (6)
  - BLOOD CREATINE PHOSPHOKINASE INCREASED [None]
  - CATATONIA [None]
  - CHILLS [None]
  - DEPRESSED LEVEL OF CONSCIOUSNESS [None]
  - GAIT DISTURBANCE [None]
  - SOMNOLENCE [None]
